FAERS Safety Report 6467219-X (Version None)
Quarter: 2009Q4

REPORT INFORMATION
  Report Type: 
  Country: None (occurrence: None)
  Receive Date: 20091202
  Receipt Date: 20091109
  Transmission Date: 20100525
  Serious: Yes (Hospitalization)
  Sender: FDA-Public Use
  Company Number: JP-SANOFI-AVENTIS-F01200900932

PATIENT
  Age: 76 Year
  Sex: Male
  Weight: 83 kg

DRUGS (5)
  1. CLOPIDOGREL BISULFATE [Suspect]
     Indication: ACUTE CORONARY SYNDROME
     Route: 048
     Dates: start: 20080707, end: 20080707
  2. CLOPIDOGREL BISULFATE [Suspect]
     Indication: ANGINA UNSTABLE
     Route: 048
     Dates: start: 20080707, end: 20080707
  3. CLOPIDOGREL BISULFATE [Suspect]
     Route: 048
     Dates: start: 00080701
  4. CLOPIDOGREL BISULFATE [Suspect]
     Route: 048
     Dates: start: 00080701
  5. MAGLAX [Concomitant]
     Route: 048
     Dates: start: 20080618, end: 20080716

REACTIONS (1)
  - SUPRAVENTRICULAR TACHYCARDIA [None]
